FAERS Safety Report 16443187 (Version 2)
Quarter: 2019Q3

REPORT INFORMATION
  Report Type: Spontaneous
  Country: US (occurrence: US)
  Receive Date: 20190617
  Receipt Date: 20190711
  Transmission Date: 20191004
  Serious: No
  Sender: FDA-Public Use
  Company Number: US-SA-2018SA108133

PATIENT
  Age: 40 Year
  Sex: Male

DRUGS (2)
  1. AUBAGIO [Suspect]
     Active Substance: TERIFLUNOMIDE
     Dosage: UNK UNK,UNK
     Route: 048
     Dates: start: 201804
  2. AUBAGIO [Suspect]
     Active Substance: TERIFLUNOMIDE
     Dosage: UNK
     Dates: start: 201906

REACTIONS (3)
  - Product dose omission [Unknown]
  - Memory impairment [Unknown]
  - Alopecia [Unknown]

NARRATIVE: CASE EVENT DATE: 20180404
